FAERS Safety Report 23633753 (Version 1)
Quarter: 2024Q1

REPORT INFORMATION
  Report Type: Spontaneous
  Country: US (occurrence: None)
  Receive Date: 20240314
  Receipt Date: 20240314
  Transmission Date: 20240410
  Serious: No
  Sender: FDA-Public Use
  Company Number: None

PATIENT
  Age: 68 Year
  Sex: Female

DRUGS (1)
  1. VTAMA [Suspect]
     Active Substance: TAPINAROF
     Indication: Psoriasis
     Dosage: APPLHY A THIN LAYER TO AFFECTED AREA(S), ONCE DAILY AS NEEDED FOR ..?
     Dates: start: 202309

REACTIONS (1)
  - Cerebrovascular accident [None]
